FAERS Safety Report 9268493 (Version 3)
Quarter: 2014Q1

REPORT INFORMATION
  Report Type: Report from Study
  Country: US (occurrence: US)
  Receive Date: 20130502
  Receipt Date: 20140326
  Transmission Date: 20141002
  Serious: Yes (Other)
  Sender: FDA-Public Use
  Company Number: US-ALEXION-A201300196

PATIENT
  Age: 30 Year
  Sex: Female

DRUGS (5)
  1. SOLIRIS [Suspect]
     Indication: PAROXYSMAL NOCTURNAL HAEMOGLOBINURIA
     Dosage: 600 MG, QW X4
     Route: 042
     Dates: start: 20101114
  2. SOLIRIS [Suspect]
     Dosage: 90 MG, Q2W
     Route: 042
  3. FOLIC ACID [Concomitant]
     Dosage: UNK
  4. CYCLOSPORIN [Concomitant]
     Dosage: 300 MG, BID
  5. BLOOD TRANSFUSION, AUXILIARY PRODUCTS [Concomitant]
     Dosage: UNK

REACTIONS (3)
  - Haemolysis [Unknown]
  - Exposure during pregnancy [Unknown]
  - Caesarean section [Recovered/Resolved]
